FAERS Safety Report 5075908-7 (Version None)
Quarter: 2006Q3

REPORT INFORMATION
  Report Type: 
  Country: None (occurrence: None)
  Receive Date: 20060807
  Receipt Date: 20060807
  Transmission Date: 20061208
  Serious: No
  Sender: FDA-Public Use
  Company Number: None

PATIENT
  Age: 50 Year
  Sex: Male

DRUGS (2)
  1. RIBAVIRIN [Suspect]
     Indication: HEPATITIS C VIRUS
     Dosage: 600 MG BID PO
     Route: 048
     Dates: start: 20060208, end: 20060715
  2. PEGASYS [Suspect]
     Indication: HEPATITIS C VIRUS
     Dosage: 180 MCG WEEKLY SQ
     Route: 058
     Dates: start: 20060208, end: 20060715

REACTIONS (5)
  - BLINDNESS UNILATERAL [None]
  - DRUG INEFFECTIVE [None]
  - OCULAR TOXICITY [None]
  - VISUAL DISTURBANCE [None]
  - VISUAL FIELD DEFECT [None]
